FAERS Safety Report 13953000 (Version 1)
Quarter: 2017Q3

REPORT INFORMATION
  Report Type: Spontaneous
  Country: US (occurrence: US)
  Receive Date: 20170911
  Receipt Date: 20170911
  Transmission Date: 20171128
  Serious: No
  Sender: FDA-Public Use
  Company Number: US-AMGEN-USASP2017136110

PATIENT
  Age: 63 Year
  Sex: Female

DRUGS (1)
  1. ENBREL [Suspect]
     Active Substance: ETANERCEPT
     Indication: ARTHRITIS
     Dosage: 50 MG, QWK
     Route: 058
     Dates: start: 20170511

REACTIONS (5)
  - Tongue erythema [Not Recovered/Not Resolved]
  - Hypertrophy of tongue papillae [Not Recovered/Not Resolved]
  - Erythema [Not Recovered/Not Resolved]
  - Plicated tongue [Not Recovered/Not Resolved]
  - Off label use [Unknown]

NARRATIVE: CASE EVENT DATE: 2017
